FAERS Safety Report 10248582 (Version 1)
Quarter: 2014Q2

REPORT INFORMATION
  Report Type: Spontaneous
  Country: IT (occurrence: IT)
  Receive Date: 20140620
  Receipt Date: 20140620
  Transmission Date: 20141212
  Serious: Yes (Other)
  Sender: FDA-Public Use
  Company Number: IT-AMGEN-ITASP2014045503

PATIENT
  Sex: 0

DRUGS (2)
  1. NPLATE [Suspect]
     Indication: IMMUNE THROMBOCYTOPENIC PURPURA
     Dosage: 4 MUG, UNK
     Route: 065
  2. ELTROMBOPAG [Concomitant]
     Dosage: 75 MG/DAY

REACTIONS (4)
  - Lymphoma [Unknown]
  - Hepatotoxicity [Unknown]
  - Myalgia [Unknown]
  - Drug ineffective [Unknown]
